FAERS Safety Report 25438532 (Version 3)
Quarter: 2025Q3

REPORT INFORMATION
  Report Type: Report from Study
  Country: US (occurrence: US)
  Receive Date: 20250616
  Receipt Date: 20250724
  Transmission Date: 20251020
  Serious: No
  Sender: DECIPHERA PHARMACEUTICALS
  Company Number: US-DECIPHERA PHARMACEUTICALS LLC-2025US000691

PATIENT
  Age: 36 Year
  Sex: Male
  Weight: 205.3 kg

DRUGS (2)
  1. ROMVIMZA [Suspect]
     Active Substance: VIMSELTINIB
     Indication: Connective tissue neoplasm
     Dosage: 30 MILLIGRAM, TWICE WEEKLY
     Route: 048
     Dates: start: 20250527
  2. ROMVIMZA [Suspect]
     Active Substance: VIMSELTINIB
     Indication: Soft tissue neoplasm

REACTIONS (6)
  - Gastrooesophageal reflux disease [Unknown]
  - Headache [Unknown]
  - Adverse reaction [Unknown]
  - Flatulence [Unknown]
  - Liver function test increased [Unknown]
  - Rash [Unknown]

NARRATIVE: CASE EVENT DATE: 20250101
